FAERS Safety Report 7364498-1 (Version None)
Quarter: 2011Q1

REPORT INFORMATION
  Report Type: 
  Country: None (occurrence: None)
  Receive Date: 20110321
  Receipt Date: 20110308
  Transmission Date: 20110831
  Serious: Yes (Hospitalization)
  Sender: FDA-Public Use
  Company Number: SE-MERCK-1103USA01501

PATIENT
  Age: 23 Year
  Sex: Female

DRUGS (11)
  1. TAVEGYL [Concomitant]
     Route: 065
  2. PULMICORT [Concomitant]
     Route: 065
  3. TRADOLAN [Concomitant]
     Route: 065
  4. BRICANYL [Concomitant]
     Route: 065
  5. SINGULAIR [Suspect]
     Indication: ASTHMA
     Route: 048
  6. DIAZEPAM [Concomitant]
     Route: 065
  7. NOZINAN [Concomitant]
     Route: 065
  8. FLUNITRAZEPAM [Concomitant]
     Route: 065
  9. ZOLPIDEM TARTRATE [Concomitant]
     Route: 065
  10. HALDOL [Concomitant]
     Route: 065
  11. INDERAL [Concomitant]
     Route: 065

REACTIONS (2)
  - ADVERSE EVENT [None]
  - DRUG EXPOSURE DURING PREGNANCY [None]
